FAERS Safety Report 18221684 (Version 1)
Quarter: 2020Q3

REPORT INFORMATION
  Report Type: Spontaneous
  Country: US (occurrence: US)
  Receive Date: 20200902
  Receipt Date: 20200902
  Transmission Date: 20201103
  Serious: No
  Sender: FDA-Public Use
  Company Number: US-DECIPHERA PHARMACEUTICALS LLC-2020-US-000028

PATIENT
  Sex: Male

DRUGS (1)
  1. QINLOCK [Suspect]
     Active Substance: RIPRETINIB
     Indication: MALIGNANT CONNECTIVE TISSUE NEOPLASM
     Dosage: 150 MILLIGRAM, QD
     Route: 048
     Dates: start: 20200701

REACTIONS (5)
  - Blood blister [Unknown]
  - Paraesthesia [Unknown]
  - Product dose omission issue [Unknown]
  - Hair growth abnormal [Unknown]
  - Product use in unapproved indication [Unknown]
